FAERS Safety Report 25786115 (Version 4)
Quarter: 2025Q4

REPORT INFORMATION
  Report Type: Spontaneous
  Country: US (occurrence: US)
  Receive Date: 20250910
  Receipt Date: 20251106
  Transmission Date: 20260118
  Serious: Yes (Other)
  Sender: PFIZER
  Company Number: US-PFIZER INC-202500176168

PATIENT
  Age: 71 Year
  Sex: Female
  Weight: 52.608 kg

DRUGS (1)
  1. ESTROGENS, CONJUGATED [Suspect]
     Active Substance: ESTROGENS, CONJUGATED
     Dosage: UNK

REACTIONS (3)
  - Atrioventricular block second degree [Unknown]
  - Urinary tract infection [Not Recovered/Not Resolved]
  - Fungal infection [Unknown]
